FAERS Safety Report 19394915 (Version 1)
Quarter: 2021Q2

REPORT INFORMATION
  Report Type: Spontaneous
  Country: US (occurrence: US)
  Receive Date: 20210609
  Receipt Date: 20210609
  Transmission Date: 20210717
  Serious: No
  Sender: FDA-Public Use
  Company Number: US-TEVA-2021-US-1918304

PATIENT
  Sex: Female

DRUGS (17)
  1. ALBUTEROL. [Concomitant]
     Active Substance: ALBUTEROL
     Route: 065
  2. CLONAZEPAM. [Concomitant]
     Active Substance: CLONAZEPAM
     Route: 065
  3. SEROQUEL [Concomitant]
     Active Substance: QUETIAPINE FUMARATE
     Route: 065
  4. PERCOCET [Concomitant]
     Active Substance: ACETAMINOPHEN\OXYCODONE HYDROCHLORIDE
     Route: 065
  5. PANTOPRAZOLE [Concomitant]
     Active Substance: PANTOPRAZOLE
     Route: 065
  6. CARBAMAZEPINE. [Suspect]
     Active Substance: CARBAMAZEPINE
     Route: 065
  7. MORPHINE [Suspect]
     Active Substance: MORPHINE
     Route: 065
  8. LASIX [Concomitant]
     Active Substance: FUROSEMIDE
     Route: 065
  9. CODEINE [Suspect]
     Active Substance: CODEINE
     Route: 065
  10. LITHIUM. [Concomitant]
     Active Substance: LITHIUM
     Route: 065
  11. AUSTEDO [Concomitant]
     Active Substance: DEUTETRABENAZINE
     Indication: TARDIVE DYSKINESIA
     Dosage: 48 MILLIGRAM DAILY; MAINTAIN DOSE
     Route: 065
  12. ASPIRIN. [Suspect]
     Active Substance: ASPIRIN
     Route: 065
  13. GABAPENTIN. [Concomitant]
     Active Substance: GABAPENTIN
     Route: 065
  14. ROPINEROL [Concomitant]
     Route: 065
  15. DEPAKOTE [Suspect]
     Active Substance: DIVALPROEX SODIUM
     Route: 065
  16. LAMICTAL [Suspect]
     Active Substance: LAMOTRIGINE
     Route: 065
  17. OXCARBAZAPINE [Concomitant]
     Active Substance: OXCARBAZEPINE
     Route: 065

REACTIONS (1)
  - Drug hypersensitivity [Unknown]
